FAERS Safety Report 8338118-3 (Version None)
Quarter: 2012Q2

REPORT INFORMATION
  Report Type: 
  Country: None (occurrence: None)
  Receive Date: 20120504
  Receipt Date: 20120425
  Transmission Date: 20120825
  Serious: Yes (Hospitalization, Other)
  Sender: FDA-Public Use
  Company Number: US-ABBOTT-12P-163-0929479-00

PATIENT
  Age: 66 Year
  Sex: Female

DRUGS (14)
  1. HUMIRA [Suspect]
     Indication: RHEUMATOID ARTHRITIS
     Route: 058
     Dates: start: 20120224, end: 20120401
  2. HUMIRA [Suspect]
     Dates: start: 20120425
  3. LISINOPRIL [Concomitant]
     Indication: HYPERTENSION
  4. LEVOTHYROXINE SODIUM [Concomitant]
     Indication: THYROID DISORDER
     Dosage: IN THE MORNING
  5. METOPROLOL TARTRATE [Concomitant]
     Indication: HYPERTENSION
     Dosage: 1.5 PILL ONCE A DAY
  6. CALTRATE + VITAMIN D [Concomitant]
     Indication: RHEUMATOID ARTHRITIS
  7. LINOMIDE [Concomitant]
     Indication: RHEUMATOID ARTHRITIS
  8. RESTASIS [Concomitant]
     Indication: DRY EYE
     Dosage: ONE DROP IN EACH EYE
  9. ALBUTEROL [Concomitant]
     Indication: ASTHMA
  10. GLYBURIDE AND METFORMIN HYDROCHLORIDE [Concomitant]
     Indication: DIABETES MELLITUS
     Dosage: 2.5/500MG TWICE A DAY
  11. PLAVIX [Concomitant]
     Indication: STENT PLACEMENT
  12. VITAMIN D [Concomitant]
     Indication: RHEUMATOID ARTHRITIS
  13. SPIRIVA [Concomitant]
     Indication: ASTHMA
  14. OXYGEN [Concomitant]
     Indication: PRODUCT USED FOR UNKNOWN INDICATION
     Dosage: MOBILE OXYGEN AS REQUIRED

REACTIONS (6)
  - DIARRHOEA [None]
  - DIARRHOEA HAEMORRHAGIC [None]
  - EYE INFLAMMATION [None]
  - CATARACT [None]
  - INFECTION [None]
  - COLITIS [None]
